FAERS Safety Report 8595591-3 (Version None)
Quarter: 2012Q3

REPORT INFORMATION
  Report Type: 
  Country: None (occurrence: None)
  Receive Date: 20120815
  Receipt Date: 20120803
  Transmission Date: 20120928
  Serious: Yes (Life-Threatening, Hospitalization)
  Sender: FDA-Public Use
  Company Number: JP-NAPPMUNDI-MAG-2012-0002250

PATIENT
  Sex: Male

DRUGS (23)
  1. VOLTAREN [Suspect]
     Indication: CANCER PAIN
     Dosage: UNK
     Route: 051
     Dates: end: 20110510
  2. MORPHINE [Concomitant]
     Dosage: 10 MG, DAILY
     Route: 048
     Dates: start: 20110507, end: 20110507
  3. FENTANYL CITRATE [Concomitant]
     Dosage: 1 MG, DAILY
     Dates: start: 20110505, end: 20110509
  4. MORPHINE [Concomitant]
     Dosage: 10 MG, DAILY
     Route: 048
     Dates: start: 20110509, end: 20110509
  5. ACETAMINOPHEN [Concomitant]
     Indication: CANCER PAIN
  6. LASIX [Concomitant]
     Dosage: UNK
     Route: 048
     Dates: end: 20110512
  7. GLUCOSE [Concomitant]
     Indication: SOMNOLENCE
     Dosage: UNK
     Dates: start: 20110510
  8. NOVOLIN R [Concomitant]
     Indication: SOMNOLENCE
     Dosage: UNK
     Dates: start: 20110510
  9. PREDNISOLONE [Concomitant]
     Dosage: UNK
     Route: 048
     Dates: end: 20110512
  10. FENTANYL CITRATE [Concomitant]
     Indication: CANCER PAIN
     Dosage: 3 MG, DAILY
     Route: 062
     Dates: start: 20110415, end: 20110505
  11. CELEBREX [Concomitant]
     Indication: CANCER PAIN
     Dosage: UNK
     Route: 048
  12. OXYCODONE HCL [Suspect]
     Dosage: 40 MG, DAILY
     Route: 048
     Dates: start: 20110510, end: 20110512
  13. LOXONIN [Suspect]
     Dosage: UNK UNK, DAILY
     Route: 048
     Dates: end: 20110510
  14. RABEPRAZOLE SODIUM [Concomitant]
     Dosage: UNK
     Route: 048
     Dates: end: 20110512
  15. MAGMITT [Concomitant]
     Route: 048
  16. OPALMON [Concomitant]
     Dosage: UNK
     Dates: end: 20110512
  17. OXYCODONE HCL [Suspect]
     Indication: CANCER PAIN
     Dosage: 40 MG, DAILY
     Route: 048
     Dates: start: 20110505, end: 20110507
  18. OXYCODONE HCL [Suspect]
     Dosage: 60 MG, DAILY
     Route: 048
     Dates: start: 20110507, end: 20110510
  19. LOXONIN [Suspect]
     Indication: CANCER PAIN
     Dosage: 60 MG, DAILY
     Route: 048
     Dates: start: 20110507, end: 20110510
  20. MORPHINE [Concomitant]
     Indication: CANCER PAIN
     Dosage: 10 MG, DAILY
     Route: 048
     Dates: start: 20110427, end: 20110427
  21. ZOLPIDEM [Concomitant]
     Dosage: UNK
     Route: 048
  22. AZULFIDINE [Concomitant]
     Dosage: UNK
     Route: 048
  23. BROVARIN [Concomitant]
     Dosage: UNK
     Route: 048

REACTIONS (3)
  - PRODUCTIVE COUGH [None]
  - SOMNOLENCE [None]
  - CONFUSIONAL STATE [None]
